FAERS Safety Report 9422528 (Version 1)
Quarter: 2013Q3

REPORT INFORMATION
  Report Type: Spontaneous
  Country: US (occurrence: None)
  Receive Date: 20130711
  Receipt Date: 20130711
  Transmission Date: 20140515
  Serious: Yes (Other)
  Sender: FDA-Public Use
  Company Number: AEUSA201300241

PATIENT
  Age: 56 Year
  Sex: Female
  Weight: 130.18 kg

DRUGS (14)
  1. GAMUNEX-C (10 PCT) [Suspect]
     Indication: PRIMARY IMMUNODEFICIENCY SYNDROME
     Route: 042
     Dates: start: 2011
  2. GLIMEPIRIDE [Concomitant]
  3. METFORMIN ER [Concomitant]
  4. LANTUS [Concomitant]
  5. LANTUS [Concomitant]
  6. LISINOPRIL [Concomitant]
  7. ATENOLOL [Concomitant]
  8. PRAVASTATIN [Concomitant]
  9. ESOMEPRAZOLE MAGNESIUM [Concomitant]
  10. PARACETAMOL [Concomitant]
  11. VENOGLOBULIN (PREV.) [Concomitant]
  12. IGIVNEX [Concomitant]
  13. IGVG [Concomitant]
  14. GAMUNEX [Concomitant]

REACTIONS (9)
  - Dry mouth [None]
  - Pyrexia [None]
  - Chills [None]
  - Headache [None]
  - Fatigue [None]
  - Dehydration [None]
  - Salmonellosis [None]
  - Feeling abnormal [None]
  - No reaction on previous exposure to drug [None]
